FAERS Safety Report 5757105-2 (Version None)
Quarter: 2008Q2

REPORT INFORMATION
  Report Type: 
  Country: None (occurrence: None)
  Receive Date: 20080603
  Receipt Date: 20080529
  Transmission Date: 20081010
  Serious: Yes (Life-Threatening)
  Sender: FDA-Public Use
  Company Number: DE-ASTRAZENECA-2008PK01161

PATIENT
  Age: 13867 Day
  Sex: Female

DRUGS (1)
  1. SEROQUEL PROLONG [Suspect]
     Indication: MENTAL DISORDER DUE TO A GENERAL MEDICAL CONDITION
     Route: 048
     Dates: start: 20080320, end: 20080523

REACTIONS (1)
  - ANAEMIA [None]
